FAERS Safety Report 10388129 (Version 2)
Quarter: 2014Q4

REPORT INFORMATION
  Report Type: Spontaneous
  Country: US (occurrence: US)
  Receive Date: 20140815
  Receipt Date: 20141009
  Transmission Date: 20150528
  Serious: Yes (Other)
  Sender: FDA-Public Use
  Company Number: US-ASTRAZENECA-2014SE58897

PATIENT
  Age: 711 Month
  Sex: Male
  Weight: 110.2 kg

DRUGS (14)
  1. BRILINTA [Suspect]
     Active Substance: TICAGRELOR
     Indication: MYOCARDIAL INFARCTION
     Route: 048
     Dates: start: 20140630, end: 20140805
  2. LIPITOR [Concomitant]
     Active Substance: ATORVASTATIN CALCIUM
     Route: 048
  3. AMLODIPINE [Concomitant]
     Active Substance: AMLODIPINE BESYLATE
     Route: 048
  4. NITRO-STAT [Concomitant]
  5. METFORMIN [Concomitant]
     Active Substance: METFORMIN HYDROCHLORIDE
     Route: 048
  6. GLYBURIDE. [Concomitant]
     Active Substance: GLYBURIDE
  7. EFFIENT [Concomitant]
     Active Substance: PRASUGREL HYDROCHLORIDE
  8. POTASSIUM [Concomitant]
     Active Substance: POTASSIUM
  9. ASA [Concomitant]
     Active Substance: ASPIRIN
  10. TRADJENTA [Concomitant]
     Active Substance: LINAGLIPTIN
  11. BRILINTA [Suspect]
     Active Substance: TICAGRELOR
     Indication: ACUTE CORONARY SYNDROME
     Route: 048
     Dates: start: 20140630, end: 20140805
  12. NORVASC [Concomitant]
     Active Substance: AMLODIPINE BESYLATE
  13. LASIX [Concomitant]
     Active Substance: FUROSEMIDE
  14. METOPROLOL [Suspect]
     Active Substance: METOPROLOL
     Route: 048

REACTIONS (9)
  - Coronary artery stenosis [Unknown]
  - Hyperdynamic left ventricle [Unknown]
  - White blood cell count increased [Unknown]
  - Dyspnoea [Not Recovered/Not Resolved]
  - Lung disorder [Unknown]
  - Chest pain [Unknown]
  - Myocardial infarction [Unknown]
  - Hyperlipidaemia [Unknown]
  - Blood glucose increased [Unknown]

NARRATIVE: CASE EVENT DATE: 201406
